FAERS Safety Report 7314898-0 (Version None)
Quarter: 2011Q1

REPORT INFORMATION
  Report Type: 
  Country: None (occurrence: None)
  Receive Date: 20110225
  Receipt Date: 20100308
  Transmission Date: 20110831
  Serious: No
  Sender: FDA-Public Use
  Company Number: US-MYLANLABS-2010S1001103

PATIENT
  Age: 20 Year
  Sex: Female
  Weight: 65.77 kg

DRUGS (4)
  1. YASMIN [Concomitant]
     Indication: CONTRACEPTION
  2. AMNESTEEM [Suspect]
     Indication: ACNE
     Route: 048
     Dates: start: 20090101, end: 20091216
  3. CLARAVIS [Suspect]
     Indication: ACNE
     Route: 048
     Dates: start: 20090101
  4. YASMIN [Suspect]

REACTIONS (2)
  - HEPATIC STEATOSIS [None]
  - ABDOMINAL PAIN UPPER [None]
